FAERS Safety Report 5965460-3 (Version None)
Quarter: 2008Q4

REPORT INFORMATION
  Report Type: 
  Country: None (occurrence: None)
  Receive Date: 20081125
  Receipt Date: 20080501
  Transmission Date: 20090506
  Serious: No
  Sender: FDA-Public Use
  Company Number: US-AMGEN-QUU276340

PATIENT
  Sex: Female

DRUGS (1)
  1. ENBREL [Suspect]
     Indication: PSORIATIC ARTHROPATHY
     Route: 058
     Dates: start: 20010101

REACTIONS (3)
  - BLOOD GLUCOSE ABNORMAL [None]
  - HYPERSENSITIVITY [None]
  - NERVOUSNESS [None]
